FAERS Safety Report 9898864 (Version 2)
Quarter: 2014Q1

REPORT INFORMATION
  Report Type: Spontaneous
  Country: US (occurrence: US)
  Receive Date: 20140214
  Receipt Date: 20140321
  Transmission Date: 20141002
  Serious: No
  Sender: FDA-Public Use
  Company Number: US-PFIZER INC-2014042547

PATIENT
  Age: 68 Year
  Sex: Female
  Weight: 77.1 kg

DRUGS (3)
  1. DILANTIN [Suspect]
     Indication: EPILEPSY
     Dosage: 200 MG, 2X/DAY (BY TAKING 100MG TWO CAPSULE IN MORNING AND TWO CAPSULES AT NIGHT)
     Route: 048
  2. VITAMIN D [Interacting]
     Dosage: 50000 IU, UNK
  3. SYNTHROID [Concomitant]
     Dosage: UNK

REACTIONS (4)
  - Drug interaction [Unknown]
  - Anticonvulsant drug level decreased [Unknown]
  - White blood cell count decreased [Unknown]
  - Lipids decreased [Unknown]
